FAERS Safety Report 17283029 (Version 1)
Quarter: 2020Q1

REPORT INFORMATION
  Report Type: Spontaneous
  Country: US (occurrence: US)
  Receive Date: 20200115
  Receipt Date: 20200115
  Transmission Date: 20200409
  Serious: No
  Sender: FDA-Public Use
  Company Number: None

PATIENT

DRUGS (1)
  1. LIPOPASTILLA GOLD PLUS [Suspect]
     Active Substance: DIETARY SUPPLEMENT
     Indication: WEIGHT DECREASED
     Dosage: ?          QUANTITY:30 CAPSULE(S);?
     Route: 048

REACTIONS (2)
  - Respiratory rate increased [None]
  - Heart rate increased [None]

NARRATIVE: CASE EVENT DATE: 20191202
